FAERS Safety Report 8776873 (Version 2)
Quarter: 2012Q4

REPORT INFORMATION
  Report Type: 
  Country: US (occurrence: US)
  Receive Date: 20120911
  Receipt Date: 20121106
  Transmission Date: 20130627
  Serious: No
  Sender: FDA-Public Use
  Company Number: US-PFIZER INC-2012223256

PATIENT
  Age: 60 Year
  Sex: Female
  Weight: 45.35 kg

DRUGS (11)
  1. ADVIL PM [Suspect]
     Indication: LEG PAIN
     Dosage: 400 mg,daily
     Route: 048
     Dates: start: 20120903, end: 20120906
  2. ADVIL PM [Suspect]
     Indication: CRAMPS OF LOWER EXTREMITIES
  3. ADVIL PM [Suspect]
     Indication: SLEEP PROBLEM
  4. LISINOPRIL [Concomitant]
     Indication: BLOOD PRESSURE HIGH
     Dosage: 10 mg, daily
  5. LISINOPRIL [Concomitant]
     Indication: WATER RETENTION
  6. LISINOPRIL [Concomitant]
     Indication: HEART DISORDER
  7. POTASSIUM [Concomitant]
     Dosage: 10 mEq, daily
  8. CARISOPRODOL [Concomitant]
     Indication: SLEEP PROBLEM
     Dosage: 350 mg, daily
  9. BUDEPRION [Concomitant]
     Indication: ANTIDEPRESSANT THERAPY
     Dosage: 150 mg, 2x/day
  10. FUROSEMIDE [Concomitant]
     Indication: WATER RETENTION
     Dosage: 40 mg, daily
  11. FUROSEMIDE [Concomitant]
     Indication: HEART DISORDER

REACTIONS (7)
  - Nausea [Recovered/Resolved]
  - Decreased appetite [Recovered/Resolved]
  - Dysgeusia [Recovered/Resolved]
  - Dyspepsia [Recovered/Resolved]
  - Dry mouth [Recovered/Resolved]
  - Toxicity to various agents [Unknown]
  - Weight decreased [Unknown]
